FAERS Safety Report 21657916 (Version 1)
Quarter: 2022Q4

REPORT INFORMATION
  Report Type: Spontaneous
  Country: US (occurrence: None)
  Receive Date: 20221128
  Receipt Date: 20221128
  Transmission Date: 20230113
  Serious: Yes (Disabling)
  Sender: FDA-Public Use
  Company Number: None

PATIENT
  Age: 72 Year
  Sex: 0

DRUGS (3)
  1. SPIRIVA RESPIMAT [Suspect]
     Active Substance: TIOTROPIUM BROMIDE
     Indication: Asthma
     Dosage: OTHER QUANTITY : 2 PUFF(S);?FREQUENCY : DAILY;?
     Route: 048
     Dates: start: 20221116, end: 20221128
  2. Advair HFA 230 2 puffs morning and night [Concomitant]
  3. anticoagulants for stents [Concomitant]

REACTIONS (6)
  - Cough [None]
  - Middle insomnia [None]
  - Nasal congestion [None]
  - Upper-airway cough syndrome [None]
  - Oropharyngeal pain [None]
  - Dysphonia [None]

NARRATIVE: CASE EVENT DATE: 20221116
